FAERS Safety Report 8072027-2 (Version None)
Quarter: 2012Q1

REPORT INFORMATION
  Report Type: 
  Country: None (occurrence: None)
  Receive Date: 20120124
  Receipt Date: 20120124
  Transmission Date: 20120608
  Serious: Yes (Hospitalization)
  Sender: FDA-Public Use
  Company Number: None

PATIENT
  Age: 46 Year
  Sex: Female

DRUGS (1)
  1. COPAXONE [Suspect]
     Dosage: 20MG/ML DAILY SUBCUTANEOUSLY
     Dates: end: 20120118

REACTIONS (6)
  - CHILLS [None]
  - FLUSHING [None]
  - HYPOTENSION [None]
  - CHEST PAIN [None]
  - TREMOR [None]
  - DIARRHOEA [None]
